FAERS Safety Report 5947699-6 (Version None)
Quarter: 2008Q4

REPORT INFORMATION
  Report Type: 
  Country: None (occurrence: None)
  Receive Date: 20081110
  Receipt Date: 20081110
  Transmission Date: 20090506
  Serious: No
  Sender: FDA-Public Use
  Company Number: None

PATIENT
  Age: 49 Year
  Sex: Female
  Weight: 99.7913 kg

DRUGS (2)
  1. ZANTAC 150 [Suspect]
     Indication: HERNIA
     Dosage: 150 MG DAILY PO
     Route: 048
     Dates: start: 20081103, end: 20081107
  2. ZANTAC 150 [Suspect]
     Indication: OESOPHAGITIS
     Dosage: 150 MG DAILY PO
     Route: 048
     Dates: start: 20081103, end: 20081107

REACTIONS (3)
  - MEDICATION ERROR [None]
  - MIGRAINE [None]
  - PHOTOPSIA [None]
